FAERS Safety Report 9014316 (Version 1)
Quarter: 2013Q1

REPORT INFORMATION
  Report Type: Spontaneous
  Country: US (occurrence: US)
  Receive Date: 20130115
  Receipt Date: 20130115
  Transmission Date: 20140127
  Serious: Yes (Death, Hospitalization)
  Sender: FDA-Public Use
  Company Number: US-JNJFOC-20130104207

PATIENT
  Age: 42 Year
  Sex: Male

DRUGS (4)
  1. IBUPROFEN [Suspect]
     Indication: SUICIDE ATTEMPT
     Route: 048
  2. ACETAMINOPHEN [Suspect]
     Route: 048
  3. ACETAMINOPHEN [Suspect]
     Indication: SUICIDE ATTEMPT
     Route: 048
  4. ETHANOL [Suspect]
     Indication: SUICIDE ATTEMPT
     Route: 048

REACTIONS (2)
  - Toxicity to various agents [Fatal]
  - Completed suicide [None]
